FAERS Safety Report 11753809 (Version 1)
Quarter: 2015Q4

REPORT INFORMATION
  Report Type: Spontaneous
  Country: OM (occurrence: OM)
  Receive Date: 20151119
  Receipt Date: 20151119
  Transmission Date: 20160304
  Serious: Yes (Other)
  Sender: FDA-Public Use
  Company Number: OM-ASTELLAS-2015US042684

PATIENT
  Age: 60 Year
  Sex: Female

DRUGS (2)
  1. LOCOID LIPOCREME [Concomitant]
     Indication: DERMATITIS ATOPIC
     Dosage: UNK UNK, TWICE DAILY
     Route: 065
  2. PROTOPIC [Suspect]
     Active Substance: TACROLIMUS
     Indication: DERMATITIS ATOPIC
     Dosage: UNK, TWICE DAILY
     Route: 061

REACTIONS (1)
  - Dermatitis contact [Unknown]

NARRATIVE: CASE EVENT DATE: 20151111
